FAERS Safety Report 14956981 (Version 4)
Quarter: 2021Q3

REPORT INFORMATION
  Report Type: Other
  Country: US (occurrence: US)
  Receive Date: 20180531
  Receipt Date: 20210726
  Transmission Date: 20211014
  Serious: Yes (Other)
  Sender: FDA-Public Use
  Company Number: US-ROCHE-2095323

PATIENT
  Age: 65 Year
  Sex: Male

DRUGS (6)
  1. CELLCEPT [Suspect]
     Active Substance: MYCOPHENOLATE MOFETIL\MYCOPHENOLATE MOFETIL HYDROCHLORIDE
     Indication: MYASTHENIA GRAVIS
     Dosage: FORM STRENGTH: 200MG/ML
     Route: 048
  2. CELLCEPT [Suspect]
     Active Substance: MYCOPHENOLATE MOFETIL\MYCOPHENOLATE MOFETIL HYDROCHLORIDE
  3. CELLCEPT [Suspect]
     Active Substance: MYCOPHENOLATE MOFETIL\MYCOPHENOLATE MOFETIL HYDROCHLORIDE
     Dosage: 5ML QAM, 3ML QPM^ FROM REORDER SIGNED 15/JAN/2021?FORM STRENGTH: 200 MG/ML
     Route: 048
  4. CELLCEPT [Suspect]
     Active Substance: MYCOPHENOLATE MOFETIL\MYCOPHENOLATE MOFETIL HYDROCHLORIDE
  5. CELLCEPT [Suspect]
     Active Substance: MYCOPHENOLATE MOFETIL\MYCOPHENOLATE MOFETIL HYDROCHLORIDE
  6. CELLCEPT [Suspect]
     Active Substance: MYCOPHENOLATE MOFETIL\MYCOPHENOLATE MOFETIL HYDROCHLORIDE
     Dosage: 200MG/ML ORAL SUSPENSION?GIVE 8CC TWICE A DAY (BID)
     Route: 048

REACTIONS (12)
  - Overweight [Unknown]
  - Myasthenia gravis [Unknown]
  - Off label use [Unknown]
  - Laboratory test abnormal [Unknown]
  - Lacrimation increased [Unknown]
  - Neurological symptom [Unknown]
  - Paralysis [Unknown]
  - Eyelid ptosis [Recovering/Resolving]
  - Gaze palsy [Unknown]
  - Blood pressure abnormal [Unknown]
  - Tremor [Unknown]
  - Diplopia [Unknown]

NARRATIVE: CASE EVENT DATE: 20201215
